FAERS Safety Report 5752424-8 (Version None)
Quarter: 2008Q2

REPORT INFORMATION
  Report Type: 
  Country: None (occurrence: None)
  Receive Date: 20080529
  Receipt Date: 20080521
  Transmission Date: 20081010
  Serious: Yes (Other)
  Sender: FDA-Public Use
  Company Number: B0517948A

PATIENT
  Age: 44 Year
  Sex: Male
  Weight: 72 kg

DRUGS (15)
  1. EPIVIR [Suspect]
     Indication: HIV INFECTION
     Dosage: 300MG PER DAY
     Route: 048
     Dates: start: 19961008
  2. VIRACEPT [Suspect]
     Indication: HIV INFECTION
     Dosage: 1.25G TWICE PER DAY
     Route: 048
     Dates: start: 20000114, end: 20010420
  3. REYATAZ [Suspect]
     Indication: HIV INFECTION
     Route: 048
     Dates: start: 20060613
  4. VIREAD [Suspect]
     Indication: HIV INFECTION
     Dosage: 245MG PER DAY
     Route: 048
     Dates: start: 20030211
  5. TELZIR [Concomitant]
     Indication: HIV INFECTION
     Route: 048
     Dates: start: 20041012, end: 20060613
  6. RETROVIR [Concomitant]
     Indication: HIV INFECTION
     Route: 048
     Dates: start: 19940503, end: 19961008
  7. AGENERASE [Concomitant]
     Indication: HIV INFECTION
     Route: 048
     Dates: start: 20010913, end: 20041012
  8. VIDEX [Concomitant]
     Indication: HIV INFECTION
     Route: 048
     Dates: start: 19950502, end: 19961008
  9. CRIXIVAN [Concomitant]
     Indication: HIV INFECTION
     Route: 048
     Dates: start: 19960903, end: 20000114
  10. ZERIT [Concomitant]
     Indication: HIV INFECTION
     Route: 048
     Dates: start: 19961008, end: 20030211
  11. SUSTIVA [Concomitant]
     Indication: HIV INFECTION
     Route: 048
     Dates: start: 20010420, end: 20010905
  12. NORVIR [Concomitant]
     Indication: HIV INFECTION
     Route: 048
     Dates: start: 20010913, end: 20070316
  13. TRIATEC [Concomitant]
     Indication: DRUG USE FOR UNKNOWN INDICATION
     Route: 048
     Dates: start: 20040901
  14. AMLOR [Concomitant]
     Indication: DRUG USE FOR UNKNOWN INDICATION
     Route: 048
     Dates: start: 20060101
  15. ASPIRIN [Concomitant]
     Indication: DRUG USE FOR UNKNOWN INDICATION
     Dosage: 75MG PER DAY
     Route: 048
     Dates: start: 20070727

REACTIONS (4)
  - ANOGENITAL DYSPLASIA [None]
  - ANOGENITAL WARTS [None]
  - HYPERCHOLESTEROLAEMIA [None]
  - HYPERTENSION [None]
